FAERS Safety Report 24071159 (Version 1)
Quarter: 2024Q3

REPORT INFORMATION
  Report Type: Report from Study
  Country: DE (occurrence: DE)
  Receive Date: 20240710
  Receipt Date: 20240710
  Transmission Date: 20241017
  Serious: No
  Sender: ROCHE
  Company Number: DE-ROCHE-3176408

PATIENT
  Age: 41 Year
  Sex: Male
  Weight: 56.0 kg

DRUGS (4)
  1. EVRYSDI [Suspect]
     Active Substance: RISDIPLAM
     Indication: Spinal muscular atrophy
     Dosage: ON 06/OCT/2022, 23/APR/2024, LAST ADMINISTRATION OF RISDIPLAM.
     Route: 048
     Dates: start: 20210506
  2. POLYETHYLENE GLYCOLS [Concomitant]
     Active Substance: POLYETHYLENE GLYCOLS
  3. AMLODIPINE [Concomitant]
     Active Substance: AMLODIPINE BESYLATE
  4. CANDESARTAN [Concomitant]
     Active Substance: CANDESARTAN

REACTIONS (3)
  - Constipation [Not Recovered/Not Resolved]
  - Rhinorrhoea [Recovered/Resolved]
  - Diarrhoea [Recovered/Resolved]

NARRATIVE: CASE EVENT DATE: 20220120
